FAERS Safety Report 17983217 (Version 1)
Quarter: 2020Q3

REPORT INFORMATION
  Report Type: Report from Study
  Country: KR (occurrence: KR)
  Receive Date: 20200706
  Receipt Date: 20200706
  Transmission Date: 20201103
  Serious: Yes (Life-Threatening, Other)
  Sender: FDA-Public Use
  Company Number: KR-PFIZER INC-2020256948

PATIENT
  Age: 52 Year
  Sex: Female

DRUGS (3)
  1. BEVACIZUMAB. [Suspect]
     Active Substance: BEVACIZUMAB
     Indication: CERVIX CARCINOMA STAGE IV
     Dosage: 15 MG/KG, CYCLIC (DAY 1 EVERY 3 WEEKS, 12 CYCLES)EACH CYCLE WAS REPEATED EVERY 3 WEEKS
     Route: 042
  2. PACLITAXEL. [Suspect]
     Active Substance: PACLITAXEL
     Indication: CERVIX CARCINOMA STAGE IV
     Dosage: 175 MG/M2, CYCLIC (ON DAY 1 EVERY 3 WEEKS, 12 CYCLES)EACH CYCLE WAS REPEATED EVERY 3 WEEKS
     Route: 042
  3. CISPLATIN. [Suspect]
     Active Substance: CISPLATIN
     Indication: CERVIX CARCINOMA STAGE IV
     Dosage: 50 MG/M2, CYCLIC (DAY 1 EVERY 3 WEEKS, 12 CYCLES)EACH CYCLE WAS REPEATED EVERY 3 WEEKS
     Route: 042

REACTIONS (2)
  - Rectal haemorrhage [Unknown]
  - Soft tissue necrosis [Unknown]
